FAERS Safety Report 22657882 (Version 1)
Quarter: 2023Q2

REPORT INFORMATION
  Report Type: Spontaneous
  Country: US (occurrence: US)
  Receive Date: 20230630
  Receipt Date: 20230630
  Transmission Date: 20230721
  Serious: Yes (Hospitalization, Other)
  Sender: FDA-Public Use
  Company Number: US-009507513-2306USA012713

PATIENT
  Sex: Female

DRUGS (1)
  1. KEYTRUDA [Suspect]
     Active Substance: PEMBROLIZUMAB
     Dosage: 2  TREATMENTS

REACTIONS (4)
  - Neuropathy peripheral [Unknown]
  - Dysphagia [Unknown]
  - Speech disorder [Unknown]
  - Mechanical ventilation [Unknown]
